FAERS Safety Report 9197398 (Version 2)
Quarter: 2013Q2

REPORT INFORMATION
  Report Type: Spontaneous
  Country: US (occurrence: US)
  Receive Date: 20130328
  Receipt Date: 20130516
  Transmission Date: 20140414
  Serious: Yes (Other)
  Sender: FDA-Public Use
  Company Number: US-GLAXOSMITHKLINE-A1017620A

PATIENT
  Age: 66 Year
  Sex: Female

DRUGS (1)
  1. FLOLAN [Suspect]
     Indication: PULMONARY ARTERIAL HYPERTENSION
     Dosage: 16.25NGKM CONTINUOUS
     Route: 042
     Dates: start: 19970822

REACTIONS (2)
  - Tooth infection [Recovered/Resolved]
  - Application site irritation [Unknown]
